FAERS Safety Report 10170490 (Version 1)
Quarter: 2014Q2

REPORT INFORMATION
  Report Type: Spontaneous
  Country: US (occurrence: US)
  Receive Date: 20140513
  Receipt Date: 20140513
  Transmission Date: 20141212
  Serious: No
  Sender: FDA-Public Use
  Company Number: US-GILEAD-2014-0101859

PATIENT
  Sex: Female

DRUGS (2)
  1. SOVALDI [Suspect]
     Indication: PRODUCT USED FOR UNKNOWN INDICATION
     Dosage: UNK
     Route: 065
     Dates: start: 201404
  2. RIBAVIRIN [Concomitant]
     Dosage: UNK
     Dates: start: 201404

REACTIONS (3)
  - Headache [Unknown]
  - Constipation [Unknown]
  - Depressed mood [Unknown]
